FAERS Safety Report 23359973 (Version 1)
Quarter: 2024Q1

REPORT INFORMATION
  Report Type: Spontaneous
  Country: JP (occurrence: JP)
  Receive Date: 20240103
  Receipt Date: 20240103
  Transmission Date: 20240409
  Serious: Yes (Death)
  Sender: FDA-Public Use
  Company Number: JP-CHUGAI-2023046617

PATIENT
  Sex: Male

DRUGS (10)
  1. TAMIFLU [Suspect]
     Active Substance: OSELTAMIVIR PHOSPHATE
     Indication: Antiviral prophylaxis
     Route: 065
     Dates: start: 20231201, end: 20231201
  2. TAMIFLU [Suspect]
     Active Substance: OSELTAMIVIR PHOSPHATE
     Indication: Influenza
     Dosage: 75 MILLIGRAM, BID
     Route: 065
     Dates: start: 20231202
  3. MOSAPRIDE CITRATE [Concomitant]
     Active Substance: MOSAPRIDE CITRATE
     Dosage: 15 MILLIGRAM, TID,IN MORNING, DURING THE DAY, IN EVENING
  4. MIYA-BM [Concomitant]
     Active Substance: CLOSTRIDIUM BUTYRICUM SPORES STRAIN M-55
     Dosage: 3 GRAM, TID,IN MORNING, DURING THE DAY, IN EVENING
  5. TEGRETOL [Concomitant]
     Active Substance: CARBAMAZEPINE
     Dosage: 2 DOSAGE FORM, BID,IN MORNING, IN EVENING
  6. DEPAKENE [Concomitant]
     Active Substance: VALPROIC ACID
     Dosage: 1000 MILLIGRAM, BID,IN MORNING, IN EVENING
  7. MYSTAN [Concomitant]
     Active Substance: CLOBAZAM
     Dosage: 10 MILLIGRAM, QD,IN EVENING
  8. ONEALFA [Concomitant]
     Active Substance: ALFACALCIDOL
     Dosage: 1 DOSAGE FORM, QD,IN EVENING
  9. LANSOPRAZOLE [Concomitant]
     Active Substance: LANSOPRAZOLE
     Dosage: 1 DOSAGE FORM, QD,IN EVENING
  10. SODIUM PICOSULFATE [Concomitant]
     Active Substance: SODIUM PICOSULFATE
     Dosage: 2 DOSAGE FORM, QD,IN EVENING

REACTIONS (2)
  - Pneumonia [Fatal]
  - Influenza [Fatal]

NARRATIVE: CASE EVENT DATE: 20231202
